FAERS Safety Report 17207429 (Version 1)
Quarter: 2019Q4

REPORT INFORMATION
  Report Type: Spontaneous
  Country: US (occurrence: US)
  Receive Date: 20191227
  Receipt Date: 20191227
  Transmission Date: 20200122
  Serious: No
  Sender: FDA-Public Use
  Company Number: US-MYLANLABS-2019M1122654

PATIENT
  Sex: Female

DRUGS (1)
  1. ESTRADIOL VAGINAL CREAM USP [Suspect]
     Active Substance: ESTRADIOL
     Indication: PREOPERATIVE CARE
     Dosage: 1 GRAM NIGHTLY FOR 2 WEEKS THEN 3 TIMES A WEEK
     Route: 067

REACTIONS (2)
  - Off label use [Not Recovered/Not Resolved]
  - Product dosage form issue [Unknown]
